FAERS Safety Report 5010797-8 (Version None)
Quarter: 2006Q2

REPORT INFORMATION
  Report Type: 
  Country: None (occurrence: None)
  Receive Date: 20060524
  Receipt Date: 20060524
  Transmission Date: 20061013
  Serious: Yes (Hospitalization)
  Sender: FDA-Public Use
  Company Number: None

PATIENT
  Age: 61 Year
  Sex: Male
  Weight: 77.5 kg

DRUGS (3)
  1. ATENOLOL [Suspect]
     Indication: HYPERTENSION
     Dosage: 50 MG QD PO [SEVERAL YEARS]
     Route: 048
  2. TERAZOSIN HCL [Suspect]
     Indication: BENIGN PROSTATIC HYPERPLASIA
     Dosage: 7 MG HS PO [SEVERAL YERS]
     Route: 048
  3. TERAZOSIN HCL [Suspect]
     Indication: HYPERTENSION
     Dosage: 7 MG HS PO [SEVERAL YERS]
     Route: 048

REACTIONS (3)
  - ASTHENIA [None]
  - BRADYCARDIA [None]
  - HYPOTENSION [None]
